FAERS Safety Report 5404764-X (Version None)
Quarter: 2007Q3

REPORT INFORMATION
  Report Type: 
  Country: None (occurrence: None)
  Receive Date: 20070801
  Receipt Date: 20070717
  Transmission Date: 20080115
  Serious: Yes (Life-Threatening, Hospitalization)
  Sender: FDA-Public Use
  Company Number: DSA_30281_2007

PATIENT
  Age: 47 Year
  Sex: Female

DRUGS (4)
  1. TAVOR [Suspect]
     Dosage: (18 MG 1X NOT THE PRESCRIBED AMOUNT. ORAL)
     Route: 048
     Dates: start: 20070717, end: 20070717
  2. DECENTAN /00023401/ (DECENTAN-PERPHENAZINE) [Suspect]
     Dosage: 160 MG 1X NOT THE PRESCRIBED AMOUNT.ORAL)
     Route: 048
     Dates: start: 20070717, end: 20070717
  3. DOMINAL (DOMINAL-PROTHIPENDYL) [Suspect]
     Dosage: (850 MG 1X NOT THE PRESCRIBED AMOUNT. ORAL)
     Route: 048
     Dates: start: 20070717, end: 20070717
  4. ZOPICLONE (ZOPICLONE) [Suspect]
     Dosage: 52 MG 1X ORAL
     Route: 048
     Dates: start: 20070717, end: 20070717

REACTIONS (4)
  - DYSKINESIA [None]
  - MULTIPLE DRUG OVERDOSE [None]
  - SOPOR [None]
  - SUICIDE ATTEMPT [None]
